FAERS Safety Report 13564764 (Version 4)
Quarter: 2017Q2

REPORT INFORMATION
  Report Type: Spontaneous
  Country: CZ (occurrence: CZ)
  Receive Date: 20170519
  Receipt Date: 20170612
  Transmission Date: 20170830
  Serious: Yes (Life-Threatening, Hospitalization, Other)
  Sender: FDA-Public Use
  Company Number: CZ-PFIZER INC-2017176187

PATIENT
  Age: 46 Year
  Sex: Female

DRUGS (8)
  1. BERODUAL [Concomitant]
     Active Substance: FENOTEROL HYDROBROMIDE\IPRATROPIUM BROMIDE
     Dosage: UNK
  2. SOLU-MEDROL [Suspect]
     Active Substance: METHYLPREDNISOLONE SODIUM SUCCINATE
     Indication: SWOLLEN TONGUE
     Dosage: 62.5 MG/ML TWICE (TOTALLY 125 MG/ML)
     Route: 041
     Dates: start: 20170325, end: 20170325
  3. FLUTIFORM [Concomitant]
     Active Substance: FLUTICASONE PROPIONATE\FORMOTEROL FUMARATE
     Dosage: UNK
  4. PENTASA [Concomitant]
     Active Substance: MESALAMINE
     Dosage: UNK
  5. MOMMOX [Concomitant]
     Active Substance: MOMETASONE FUROATE
     Dosage: UNK
  6. SOLU-MEDROL [Suspect]
     Active Substance: METHYLPREDNISOLONE SODIUM SUCCINATE
     Indication: LARYNGEAL OEDEMA
     Dosage: 40MG/ML (TOTALLY 80 MG/ML)
     Route: 041
     Dates: start: 20170325, end: 20170325
  7. DASSELTA [Concomitant]
     Active Substance: DESLORATADINE
     Dosage: UNK
  8. MONKASTA [Concomitant]
     Dosage: UNK

REACTIONS (9)
  - Tongue oedema [Recovered/Resolved]
  - Dyspnoea [Recovered/Resolved]
  - Condition aggravated [Recovered/Resolved]
  - Pneumonia aspiration [Unknown]
  - Dyspnoea at rest [Recovered/Resolved]
  - Drug ineffective [Unknown]
  - Venous thrombosis [Unknown]
  - Laryngeal oedema [Recovered/Resolved]
  - Hypokalaemia [Unknown]

NARRATIVE: CASE EVENT DATE: 20170325
